FAERS Safety Report 9287797 (Version 1)
Quarter: 2013Q2

REPORT INFORMATION
  Report Type: Spontaneous
  Country: US (occurrence: US)
  Receive Date: 20130514
  Receipt Date: 20130514
  Transmission Date: 20140414
  Serious: No
  Sender: FDA-Public Use
  Company Number: US-PFIZER INC-2013145629

PATIENT
  Age: 73 Year
  Sex: Female
  Weight: 69.39 kg

DRUGS (5)
  1. CELEBREX [Suspect]
     Indication: ARTHRITIS
     Dosage: 200 MG, 1X/DAY
     Dates: start: 201304
  2. CELEBREX [Suspect]
     Indication: BACK PAIN
  3. AMLODIPINE [Concomitant]
     Indication: HYPERTENSION
     Dosage: 5 MG, 1X/DAY IN MORNING
  4. METOPROLOL [Concomitant]
     Indication: HYPERTENSION
     Dosage: 50 UG, 2X/DAY
  5. HYDROCHLOROTHIAZIDE [Concomitant]
     Indication: HYPERTENSION
     Dosage: 75 MG, 1X/DAY IN MORNING

REACTIONS (1)
  - Back pain [Unknown]
